FAERS Safety Report 19922420 (Version 1)
Quarter: 2021Q4

REPORT INFORMATION
  Report Type: Spontaneous
  Country: US (occurrence: US)
  Receive Date: 20211005
  Receipt Date: 20211005
  Transmission Date: 20220303
  Serious: Yes (Hospitalization)
  Sender: FDA-Public Use
  Company Number: None

PATIENT
  Age: 13 Year
  Sex: Female
  Weight: 52.1 kg

DRUGS (1)
  1. REGEN-COV [Suspect]
     Active Substance: CASIRIVIMAB\IMDEVIMAB
     Indication: COVID-19
     Dosage: ?          OTHER FREQUENCY:ONCE;
     Route: 042
     Dates: start: 20210930, end: 20210930

REACTIONS (10)
  - Back pain [None]
  - Hypotension [None]
  - Rash macular [None]
  - Conjunctivitis [None]
  - Oxygen saturation decreased [None]
  - Multisystem inflammatory syndrome in children [None]
  - White blood cell count increased [None]
  - Platelet count decreased [None]
  - Lymphopenia [None]
  - Inflammatory marker increased [None]

NARRATIVE: CASE EVENT DATE: 20211002
